FAERS Safety Report 9495394 (Version 1)
Quarter: 2013Q3

REPORT INFORMATION
  Report Type: Spontaneous
  Country: ES (occurrence: ES)
  Receive Date: 20130903
  Receipt Date: 20130903
  Transmission Date: 20140515
  Serious: Yes (Other)
  Sender: FDA-Public Use
  Company Number: ES-ROXANE LABORATORIES, INC.-2013-RO-01449RO

PATIENT
  Age: 66 Year
  Sex: Male

DRUGS (5)
  1. MYCOPHENOLATE MOFETIL [Suspect]
     Indication: POLYARTERITIS NODOSA
     Dosage: 2000 MG
     Dates: start: 200909, end: 201003
  2. MYCOPHENOLATE MOFETIL [Suspect]
     Dosage: 3000 MG
     Dates: start: 201003
  3. CALCIUM CARBONATE [Suspect]
  4. CORTICOSTEROIDS [Suspect]
     Indication: POLYARTERITIS NODOSA
     Dates: start: 200909
  5. TRIMETHOPRIM-SULFAMETHOXAZOLE [Suspect]
     Indication: ANTIBIOTIC PROPHYLAXIS

REACTIONS (4)
  - Listeriosis [Recovered/Resolved]
  - Arthritis bacterial [Recovered/Resolved]
  - Osteonecrosis [Unknown]
  - Gastrooesophageal reflux disease [Unknown]
